FAERS Safety Report 5402099-2 (Version None)
Quarter: 2007Q3

REPORT INFORMATION
  Report Type: 
  Country: None (occurrence: None)
  Receive Date: 20070801
  Receipt Date: 20070719
  Transmission Date: 20080115
  Serious: Yes (Other)
  Sender: FDA-Public Use
  Company Number: US-JNJFOC-20070706140

PATIENT
  Age: 48 Year
  Sex: Female

DRUGS (3)
  1. INFLIXIMAB [Suspect]
     Indication: SCLERITIS
     Dosage: 7 INFUSIONS RECEIVED
     Route: 042
  2. MYCOPHENOLATE MOFETIL [Concomitant]
  3. PREDNISONE [Concomitant]

REACTIONS (1)
  - LUPUS-LIKE SYNDROME [None]
